FAERS Safety Report 4754236-0 (Version None)
Quarter: 2005Q3

REPORT INFORMATION
  Report Type: 
  Country: None (occurrence: None)
  Receive Date: 20050825
  Receipt Date: 20050825
  Transmission Date: 20060218
  Serious: No
  Sender: FDA-Public Use
  Company Number: None

PATIENT
  Age: 32 Year
  Sex: Female

DRUGS (4)
  1. TB-PPD  MANTOUX [Suspect]
     Indication: TUBERCULIN TEST
     Dosage: INTRADERMAL(L) FOREARM
     Route: 023
     Dates: start: 20050809
  2. CLARITIN [Concomitant]
  3. SINGULAIR [Concomitant]
  4. ADVAIR DISKUS 100/50 [Concomitant]

REACTIONS (5)
  - BLOOD PRESSURE INCREASED [None]
  - ERYTHEMA [None]
  - HEART RATE INCREASED [None]
  - PARAESTHESIA [None]
  - VISION BLURRED [None]
